FAERS Safety Report 6120234-8 (Version None)
Quarter: 2009Q1

REPORT INFORMATION
  Report Type: 
  Country: None (occurrence: None)
  Receive Date: 20090312
  Receipt Date: 20090306
  Transmission Date: 20090719
  Serious: Yes (Hospitalization, Other)
  Sender: FDA-Public Use
  Company Number: CERZ-1000548

PATIENT
  Age: 74 Year
  Sex: Female
  Weight: 83 kg

DRUGS (1)
  1. CEREZYME [Suspect]
     Indication: GAUCHER'S DISEASE
     Dosage: 6400 U, Q2W, INTRAVENOUS, 24 U/KG, Q2W, INTRAVENOUS, 60 U/KG, Q2W, INTRAVENOUS
     Route: 042
     Dates: start: 19970301

REACTIONS (11)
  - BONE DENSITY DECREASED [None]
  - BRONCHITIS [None]
  - COLON CANCER [None]
  - EPISTAXIS [None]
  - IMPAIRED HEALING [None]
  - LYMPHOMA [None]
  - RESPIRATORY DISORDER [None]
  - SINUSITIS [None]
  - TOOTH DISORDER [None]
  - UPPER RESPIRATORY TRACT INFECTION [None]
  - WEIGHT INCREASED [None]
